FAERS Safety Report 4644838-4 (Version None)
Quarter: 2005Q2

REPORT INFORMATION
  Report Type: 
  Country: None (occurrence: None)
  Receive Date: 20050426
  Receipt Date: 20050119
  Transmission Date: 20051028
  Serious: Yes (Life-Threatening, Hospitalization, Disabling, Other)
  Sender: FDA-Public Use
  Company Number: US-MERCK-0501USA03128

PATIENT
  Age: 63 Year
  Sex: Female
  Weight: 125 kg

DRUGS (5)
  1. VIOXX [Suspect]
     Indication: OSTEOARTHRITIS
     Route: 048
     Dates: start: 19990928, end: 20041001
  2. VIOXX [Suspect]
     Indication: OSTEOARTHRITIS
     Route: 048
     Dates: start: 19990928, end: 20041001
  3. ATACAND [Concomitant]
     Route: 065
  4. EFFEXOR [Concomitant]
     Route: 065
  5. LASIX [Concomitant]
     Route: 065

REACTIONS (18)
  - APNOEA [None]
  - BRADYCARDIA [None]
  - CARDIOMEGALY [None]
  - CHEST PAIN [None]
  - DYSPNOEA [None]
  - EYE INJURY [None]
  - EYE SWELLING [None]
  - FALL [None]
  - FATIGUE [None]
  - HUNGER [None]
  - HYPERLIPIDAEMIA [None]
  - INFLUENZA [None]
  - INSOMNIA [None]
  - JOINT SPRAIN [None]
  - LYMPHOEDEMA [None]
  - MYOCARDIAL INFARCTION [None]
  - OEDEMA PERIPHERAL [None]
  - WEIGHT INCREASED [None]
